FAERS Safety Report 10098775 (Version 3)
Quarter: 2014Q2

REPORT INFORMATION
  Report Type: Spontaneous
  Country: JP (occurrence: JP)
  Receive Date: 20140423
  Receipt Date: 20140625
  Transmission Date: 20141212
  Serious: Yes (Other)
  Sender: FDA-Public Use
  Company Number: JP-SA-2014SA051508

PATIENT
  Age: 37 Year
  Sex: Female
  Weight: 50 kg

DRUGS (1)
  1. DELLEGRA [Suspect]
     Indication: RHINITIS ALLERGIC
     Dosage: 2 TABLETS BID
     Route: 048
     Dates: start: 20140403, end: 20140403

REACTIONS (1)
  - Neuropathy peripheral [Recovering/Resolving]
